FAERS Safety Report 8379054-6 (Version None)
Quarter: 2012Q2

REPORT INFORMATION
  Report Type: 
  Country: None (occurrence: None)
  Receive Date: 20120522
  Receipt Date: 20120522
  Transmission Date: 20120825
  Serious: No
  Sender: FDA-Public Use
  Company Number: None

PATIENT
  Age: 63 Year
  Sex: Male
  Weight: 96.1626 kg

DRUGS (2)
  1. VIVITROL [Suspect]
     Dosage: 380 MG Q MONTH IM
     Route: 030
     Dates: start: 20120202
  2. VIVITROL [Suspect]
     Dosage: 380 MG Q MONTH IM
     Route: 030
     Dates: start: 20120301

REACTIONS (3)
  - OEDEMA PERIPHERAL [None]
  - INJECTION SITE SWELLING [None]
  - INJECTION SITE PAIN [None]
